FAERS Safety Report 10399109 (Version 1)
Quarter: 2014Q3

REPORT INFORMATION
  Report Type: Report from Study
  Country: BR (occurrence: BR)
  Receive Date: 20140821
  Receipt Date: 20140821
  Transmission Date: 20150326
  Serious: Yes (Other)
  Sender: FDA-Public Use
  Company Number: PHHY2014BR101440

PATIENT
  Age: 59 Year

DRUGS (4)
  1. ONBREZ [Suspect]
     Active Substance: INDACATEROL
     Indication: DYSPNOEA
     Dosage: 150 UG/DAY
  2. ONBREZ [Suspect]
     Active Substance: INDACATEROL
     Indication: OFF LABEL USE
  3. BUDESONIDE. [Suspect]
     Active Substance: BUDESONIDE
     Indication: DYSPNOEA
     Dosage: 800 UG/DAY
  4. TIOTROPIUM [Suspect]
     Active Substance: TIOTROPIUM
     Indication: DYSPNOEA
     Dosage: 5 UG/DAY

REACTIONS (8)
  - Terminal state [Unknown]
  - Dyspnoea [Recovering/Resolving]
  - Depressive symptom [Recovering/Resolving]
  - Quality of life decreased [Recovering/Resolving]
  - Lung hyperinflation [Unknown]
  - Forced expiratory volume decreased [Not Recovered/Not Resolved]
  - Emphysema [Unknown]
  - Forced vital capacity decreased [Recovering/Resolving]
